FAERS Safety Report 19873053 (Version 1)
Quarter: 2021Q3

REPORT INFORMATION
  Report Type: Spontaneous
  Country: CN (occurrence: CN)
  Receive Date: 20210922
  Receipt Date: 20210922
  Transmission Date: 20211014
  Serious: Yes (Hospitalization, Other)
  Sender: FDA-Public Use
  Company Number: CN-009507513-2109CHN005004

PATIENT
  Age: 64 Year
  Sex: Male
  Weight: 68 kg

DRUGS (7)
  1. KEYTRUDA [Suspect]
     Active Substance: PEMBROLIZUMAB
     Dosage: 200 MG, 1 TIME IN 1 DAY
     Route: 041
     Dates: start: 20210608, end: 20210608
  2. KEYTRUDA [Suspect]
     Active Substance: PEMBROLIZUMAB
     Dosage: 200 MG, 1 TIME IN 1 DAY
     Route: 041
     Dates: start: 20210517, end: 20210517
  3. LENVATINIB MESYLATE [Suspect]
     Active Substance: LENVATINIB MESYLATE
     Indication: HEPATIC CANCER METASTATIC
     Dosage: 8 MG, QD
     Route: 048
     Dates: start: 20210402, end: 202109
  4. KEYTRUDA [Suspect]
     Active Substance: PEMBROLIZUMAB
     Dosage: 200 MG, 1 TIME IN 1 DAY
     Route: 041
     Dates: start: 20210421, end: 20210421
  5. LENVATINIB MESYLATE [Suspect]
     Active Substance: LENVATINIB MESYLATE
     Dosage: 4 MILLIGRAM, QD
     Route: 048
     Dates: start: 202109, end: 20210910
  6. KEYTRUDA [Suspect]
     Active Substance: PEMBROLIZUMAB
     Indication: HEPATIC CANCER METASTATIC
     Dosage: 200 MG, 1 TIME IN 1 DAY
     Route: 041
     Dates: start: 20210401, end: 20210401
  7. KEYTRUDA [Suspect]
     Active Substance: PEMBROLIZUMAB
     Dosage: 200 MG, 1 TIME IN 1 DAY
     Route: 041
     Dates: start: 20210629, end: 20210629

REACTIONS (5)
  - Inappropriate schedule of product administration [Unknown]
  - Pneumonia [Unknown]
  - Inappropriate schedule of product administration [Unknown]
  - Inappropriate schedule of product administration [Unknown]
  - Blood creatinine increased [Unknown]

NARRATIVE: CASE EVENT DATE: 2021
